FAERS Safety Report 19111635 (Version 1)
Quarter: 2021Q2

REPORT INFORMATION
  Report Type: Spontaneous
  Country: CN (occurrence: CN)
  Receive Date: 20210408
  Receipt Date: 20210408
  Transmission Date: 20210717
  Serious: Yes (Other)
  Sender: FDA-Public Use
  Company Number: CN-PFIZER INC-2021361389

PATIENT
  Age: 4 Year
  Sex: Male
  Weight: 16 kg

DRUGS (8)
  1. GLUCOSE [Suspect]
     Active Substance: DEXTROSE
     Dosage: 100 ML, 2X/DAY
     Route: 041
     Dates: start: 20210218, end: 20210225
  2. HOMOHARRINGTONINE [Suspect]
     Active Substance: OMACETAXINE MEPESUCCINATE
     Indication: ACUTE LEUKAEMIA
     Dosage: 1.87 ML, 1X/DAY
     Route: 041
     Dates: start: 20210218, end: 20210225
  3. DEXAMETHASONE SODIUM PHOSPHATE. [Suspect]
     Active Substance: DEXAMETHASONE SODIUM PHOSPHATE
     Indication: ACUTE LEUKAEMIA
     Dosage: 2.5 MG, 1X/DAY
     Route: 037
     Dates: start: 20210218, end: 20210218
  4. SODIUM CHLORIDE. [Suspect]
     Active Substance: SODIUM CHLORIDE
     Indication: ACUTE LEUKAEMIA
     Dosage: 3 ML, 1X/DAY
     Route: 037
     Dates: start: 20210218, end: 20210218
  5. CYTOSAR [Suspect]
     Active Substance: CYTARABINE
     Indication: ACUTE LEUKAEMIA
     Dosage: 0.035 G, 1X/DAY
     Route: 037
     Dates: start: 20210218, end: 20210218
  6. METHOTREXATE. [Suspect]
     Active Substance: METHOTREXATE
     Indication: ACUTE LEUKAEMIA
     Dosage: 12.5 MG, 1X/DAY
     Route: 041
     Dates: start: 20210218, end: 20210218
  7. CYTOSAR [Suspect]
     Active Substance: CYTARABINE
     Dosage: 0.063 G, 2X/DAY
     Route: 041
     Dates: start: 20210218, end: 20210225
  8. GLUCOSE [Suspect]
     Active Substance: DEXTROSE
     Indication: ACUTE LEUKAEMIA
     Dosage: 250 ML, 1X/DAY
     Route: 041
     Dates: start: 20210218, end: 20210225

REACTIONS (1)
  - Myelosuppression [Recovering/Resolving]

NARRATIVE: CASE EVENT DATE: 20210226
